FAERS Safety Report 7673156-5 (Version None)
Quarter: 2011Q3

REPORT INFORMATION
  Report Type: 
  Country: None (occurrence: None)
  Receive Date: 20110810
  Receipt Date: 20110802
  Transmission Date: 20111222
  Serious: Yes (Hospitalization)
  Sender: FDA-Public Use
  Company Number: US-BIOGENIDEC-2011BI026631

PATIENT
  Age: 41 Year
  Sex: Female

DRUGS (4)
  1. AVONEX [Concomitant]
     Route: 030
  2. AVONEX [Concomitant]
     Indication: MULTIPLE SCLEROSIS
     Route: 030
     Dates: start: 20040305
  3. TYSABRI [Suspect]
     Indication: MULTIPLE SCLEROSIS
     Route: 042
     Dates: start: 20100518
  4. TYSABRI [Suspect]
     Route: 042
     Dates: start: 20050112

REACTIONS (1)
  - MULTIPLE SCLEROSIS RELAPSE [None]
